FAERS Safety Report 22598265 (Version 3)
Quarter: 2024Q4

REPORT INFORMATION
  Report Type: Report from Study
  Country: BR (occurrence: BR)
  Receive Date: 20230614
  Receipt Date: 20241219
  Transmission Date: 20250115
  Serious: Yes (Disabling)
  Sender: CELLTRION
  Company Number: BR-CELLTRION INC.-2023BR012023

PATIENT

DRUGS (4)
  1. INFLIXIMAB-DYYB [Suspect]
     Active Substance: INFLIXIMAB-DYYB
     Indication: Rheumatoid arthritis
     Dosage: UNK
     Route: 042
     Dates: start: 20220926
  2. INFLIXIMAB-DYYB [Suspect]
     Active Substance: INFLIXIMAB-DYYB
     Indication: Crohn^s disease
  3. MESALAMINE [Concomitant]
     Active Substance: MESALAMINE
     Dosage: UNK
  4. METHOTREXATE [Concomitant]
     Active Substance: METHOTREXATE
     Dosage: UNK

REACTIONS (5)
  - Fibromyalgia [Unknown]
  - Arthralgia [Unknown]
  - Pain [Unknown]
  - Therapy interrupted [Unknown]
  - Product dose omission issue [Unknown]
